FAERS Safety Report 6047705-7 (Version None)
Quarter: 2009Q1

REPORT INFORMATION
  Report Type: 
  Country: None (occurrence: None)
  Receive Date: 20090123
  Receipt Date: 20090121
  Transmission Date: 20090719
  Serious: Yes (Death)
  Sender: FDA-Public Use
  Company Number: US-JNJFOC-20081100428

PATIENT
  Sex: Male
  Weight: 83.92 kg

DRUGS (25)
  1. LEVAQUIN [Suspect]
     Indication: URINARY TRACT INFECTION
     Dosage: 5 DAYS
     Route: 048
  2. COSAMIN DS [Concomitant]
     Route: 065
  3. CENTRUM SILVER [Concomitant]
     Route: 065
  4. PREDNISONE TAB [Concomitant]
     Indication: CHRONIC OBSTRUCTIVE PULMONARY DISEASE
     Route: 048
  5. FUROSEMIDE [Concomitant]
     Route: 065
  6. LEXAPRO [Concomitant]
     Route: 065
  7. GABAPENTIN [Concomitant]
     Route: 065
  8. GLYBURIDE [Concomitant]
     Route: 065
  9. SPIRIVA [Concomitant]
     Route: 065
  10. ALBUTEROL [Concomitant]
     Route: 065
  11. PULMICORT-100 [Concomitant]
     Route: 065
  12. DULCOLAX [Concomitant]
     Route: 054
  13. VITAMIN B-12 [Concomitant]
     Route: 065
  14. VITAMIN E [Concomitant]
     Route: 065
  15. ASCORBIC ACID [Concomitant]
     Route: 065
  16. CENTRUM [Concomitant]
     Route: 065
  17. ARICEPT [Concomitant]
     Route: 065
  18. GLIMPERIDE [Concomitant]
     Route: 065
  19. LIPITOR [Concomitant]
     Route: 065
  20. COZAAR [Concomitant]
     Route: 065
  21. BAYER [Concomitant]
     Route: 065
  22. PRANDIN [Concomitant]
     Route: 065
  23. LISINOPRIL [Concomitant]
     Route: 065
  24. NEXIUM [Concomitant]
     Route: 065
  25. VERAPAMIL [Concomitant]
     Route: 065

REACTIONS (5)
  - ABASIA [None]
  - CARDIAC FAILURE [None]
  - CHRONIC OBSTRUCTIVE PULMONARY DISEASE [None]
  - JOINT SWELLING [None]
  - TENDON DISORDER [None]
